FAERS Safety Report 10094078 (Version 3)
Quarter: 2014Q2

REPORT INFORMATION
  Report Type: Spontaneous
  Country: US (occurrence: US)
  Receive Date: 20140422
  Receipt Date: 20140502
  Transmission Date: 20141212
  Serious: Yes (Hospitalization)
  Sender: FDA-Public Use
  Company Number: US-BIOGENIDEC-2014BI036110

PATIENT
  Age: 48 Year
  Sex: Female

DRUGS (1)
  1. TYSABRI [Suspect]
     Indication: MULTIPLE SCLEROSIS
     Route: 042
     Dates: start: 20070417

REACTIONS (19)
  - Nephrolithiasis [Recovered/Resolved]
  - Pyrexia [Not Recovered/Not Resolved]
  - Liver disorder [Recovered/Resolved]
  - Immunodeficiency [Recovered/Resolved]
  - Sepsis [Not Recovered/Not Resolved]
  - Fatigue [Unknown]
  - Asthenia [Not Recovered/Not Resolved]
  - Hypertension [Not Recovered/Not Resolved]
  - Loss of control of legs [Not Recovered/Not Resolved]
  - Catheter site vesicles [Not Recovered/Not Resolved]
  - Confusional state [Not Recovered/Not Resolved]
  - Affect lability [Not Recovered/Not Resolved]
  - Pancreatic disorder [Recovered/Resolved]
  - Diabetes mellitus [Not Recovered/Not Resolved]
  - Stress [Not Recovered/Not Resolved]
  - Dysuria [Not Recovered/Not Resolved]
  - White blood cell count increased [Recovered/Resolved]
  - Anxiety [Recovered/Resolved]
  - Renal impairment [Recovered/Resolved]
